FAERS Safety Report 20348099 (Version 1)
Quarter: 2022Q1

REPORT INFORMATION
  Report Type: Spontaneous
  Country: US (occurrence: US)
  Receive Date: 20220118
  Receipt Date: 20220118
  Transmission Date: 20220424
  Serious: No
  Sender: FDA-Public Use
  Company Number: US-UROGEN PHARMA LTD.-2021-UGN-000112

PATIENT

DRUGS (3)
  1. JELMYTO [Suspect]
     Active Substance: MITOMYCIN
     Indication: Transitional cell cancer of the renal pelvis and ureter
     Dosage: 80 MG (INSTILLATION ON BOTH KIDNEYS)
     Dates: start: 20211116, end: 20211116
  2. JELMYTO [Suspect]
     Active Substance: MITOMYCIN
     Dosage: 80 MG (INSTILLATION ON BOTH KIDNEYS)
     Dates: start: 20211123, end: 20211123
  3. JELMYTO [Suspect]
     Active Substance: MITOMYCIN
     Dosage: 80 MG (INSTILLATION ON BOTH KIDNEYS)
     Dates: start: 20211130, end: 20211130

REACTIONS (1)
  - Urine analysis abnormal [Unknown]

NARRATIVE: CASE EVENT DATE: 20210101
